FAERS Safety Report 22588595 (Version 1)
Quarter: 2023Q2

REPORT INFORMATION
  Report Type: Spontaneous
  Country: US (occurrence: None)
  Receive Date: 20230608
  Receipt Date: 20230608
  Transmission Date: 20230721
  Serious: Yes (Other)
  Sender: FDA-Public Use
  Company Number: None

PATIENT
  Sex: Male

DRUGS (2)
  1. STELARA [Suspect]
     Active Substance: USTEKINUMAB
     Indication: Psoriasis
     Dosage: OTHER FREQUENCY : EVERY 12 WEEKS;?
     Route: 058
     Dates: start: 20191108
  2. STELARA [Suspect]
     Active Substance: USTEKINUMAB
     Dosage: OTHER FREQUENCY : EVERY 12 WEEKS;?
     Route: 058

REACTIONS (2)
  - Spinal operation [None]
  - Peripheral nerve operation [None]
